FAERS Safety Report 8396878-X (Version None)
Quarter: 2012Q2

REPORT INFORMATION
  Report Type: 
  Country: None (occurrence: None)
  Receive Date: 20120530
  Receipt Date: 20120503
  Transmission Date: 20120825
  Serious: No
  Sender: FDA-Public Use
  Company Number: US-BAYER-2012-048794

PATIENT
  Age: 90 Year
  Sex: Female
  Weight: 58 kg

DRUGS (3)
  1. PRILOSEC [Concomitant]
  2. ALEVE (CAPLET) [Suspect]
     Indication: BACK PAIN
     Dosage: 2 DF, PRN
     Route: 048
     Dates: start: 20120501
  3. CIRCULATION MEDICATION [Concomitant]

REACTIONS (1)
  - NO ADVERSE EVENT [None]
